FAERS Safety Report 19740108 (Version 1)
Quarter: 2021Q3

REPORT INFORMATION
  Report Type: Report from Study
  Country: EG (occurrence: EG)
  Receive Date: 20210823
  Receipt Date: 20210823
  Transmission Date: 20211014
  Serious: Yes (Other)
  Sender: FDA-Public Use
  Company Number: NVSC2021EG181197

PATIENT
  Sex: Female

DRUGS (7)
  1. GLIVEC [Suspect]
     Active Substance: IMATINIB MESYLATE
     Indication: CHRONIC MYELOID LEUKAEMIA
     Dosage: UNK
     Route: 065
  2. CONCOR 5 PLUS [Concomitant]
     Indication: PRODUCT USED FOR UNKNOWN INDICATION
     Dosage: UNK (EITHER 1, 2 OR 3 TABS/DAY)
     Route: 065
  3. VILDAGLUSE [Concomitant]
     Active Substance: VILDAGLIPTIN
     Indication: PRODUCT USED FOR UNKNOWN INDICATION
     Dosage: UNK (VARIABLE DOSES FROM 1 TO 2 TABS/DAY
     Route: 065
  4. GLIVEC [Suspect]
     Active Substance: IMATINIB MESYLATE
     Indication: CHRONIC MYELOID LEUKAEMIA
     Dosage: 400 MG, QD
     Route: 065
     Dates: start: 2009
  5. GLIVEC [Suspect]
     Active Substance: IMATINIB MESYLATE
     Dosage: 600 MG, QD
     Route: 065
     Dates: start: 2010, end: 2015
  6. X TENSION PLUS [Concomitant]
     Indication: BLOOD PRESSURE MEASUREMENT
     Dosage: UNK (300) (0.5 TO 1 TAB/DAY) FOR A WEEK ONLY
     Route: 065
  7. DIAMICRON [Concomitant]
     Active Substance: GLICLAZIDE
     Indication: PRODUCT USED FOR UNKNOWN INDICATION
     Dosage: UNK (VARIABLE DOSES ALONG THE TREATMENT PERIOD)
     Route: 065

REACTIONS (13)
  - Neck pain [Recovering/Resolving]
  - Flank pain [Recovering/Resolving]
  - Product dose omission issue [Recovered/Resolved]
  - Musculoskeletal chest pain [Recovering/Resolving]
  - Back pain [Recovering/Resolving]
  - Arthralgia [Recovering/Resolving]
  - Myelosuppression [Recovering/Resolving]
  - Cytogenetic analysis abnormal [Recovered/Resolved]
  - Bone pain [Recovering/Resolving]
  - Mobility decreased [Recovering/Resolving]
  - Ear pain [Recovering/Resolving]
  - Product availability issue [Recovered/Resolved]
  - Vitamin D decreased [Recovering/Resolving]
